FAERS Safety Report 4543733-9 (Version None)
Quarter: 2004Q4

REPORT INFORMATION
  Report Type: 
  Country: None (occurrence: None)
  Receive Date: 20041223
  Receipt Date: 20040914
  Transmission Date: 20050328
  Serious: No
  Sender: FDA-Public Use
  Company Number: US-JNJFOC-20040905001

PATIENT
  Age: 30 Year
  Sex: Female
  Weight: 46.2669 kg

DRUGS (4)
  1. ORTHO EVRA [Suspect]
     Indication: CONTRACEPTION
     Dosage: 1 DOSE(S) 3 IN 4 WEEK, TRANSDERMAL
     Route: 062
     Dates: start: 20040828
  2. NEXIUM [Concomitant]
  3. OMEPRAZOLE [Concomitant]
  4. ZANTAC [Concomitant]

REACTIONS (2)
  - EPISTAXIS [None]
  - HEADACHE [None]
